FAERS Safety Report 16400002 (Version 2)
Quarter: 2019Q2

REPORT INFORMATION
  Report Type: Spontaneous
  Country: US (occurrence: US)
  Receive Date: 20190606
  Receipt Date: 20190610
  Transmission Date: 20190711
  Serious: Yes (Death, Hospitalization, Other)
  Sender: FDA-Public Use
  Company Number: US-ALLERGAN-1923701US

PATIENT
  Sex: Female

DRUGS (1)
  1. HYDROCHLOROTHIAZIDE UNK [Suspect]
     Active Substance: HYDROCHLOROTHIAZIDE
     Indication: HYPERTENSION
     Route: 065

REACTIONS (16)
  - Femur fracture [Unknown]
  - Oesophageal achalasia [Unknown]
  - Hiatus hernia [Unknown]
  - Regurgitation [Unknown]
  - Pneumonia aspiration [Fatal]
  - Asthenia [Fatal]
  - Dysphagia [Unknown]
  - Respiratory failure [Unknown]
  - Hypophagia [Unknown]
  - Encephalopathy [Unknown]
  - Hyponatraemia [Unknown]
  - Condition aggravated [Unknown]
  - Gastrooesophageal reflux disease [Unknown]
  - Fall [Unknown]
  - Urinary tract infection [Unknown]
  - Chest pain [Unknown]
